FAERS Safety Report 7352070-9 (Version None)
Quarter: 2011Q1

REPORT INFORMATION
  Report Type: 
  Country: None (occurrence: None)
  Receive Date: 20110315
  Receipt Date: 20110311
  Transmission Date: 20110831
  Serious: No
  Sender: FDA-Public Use
  Company Number: US-PFIZER INC-2010166727

PATIENT
  Sex: Female
  Weight: 59.9 kg

DRUGS (4)
  1. LIPITOR [Suspect]
     Indication: BLOOD CHOLESTEROL INCREASED
     Dosage: 5 MG, 1X/DAY
     Route: 048
     Dates: start: 20101122, end: 20101206
  2. TRIAMTERENE AND HYDROCHLOROTHIAZIDE [Concomitant]
     Indication: HYPERTENSION
     Dosage: UNK
  3. TOPROL-XL [Concomitant]
     Indication: HYPERTENSION
     Dosage: UNK
  4. PERCOCET [Concomitant]
     Indication: BACK PAIN
     Dosage: UNK

REACTIONS (9)
  - DIZZINESS [None]
  - HEADACHE [None]
  - VOMITING [None]
  - FAECAL INCONTINENCE [None]
  - MYALGIA [None]
  - ACTIVITIES OF DAILY LIVING IMPAIRED [None]
  - DIARRHOEA [None]
  - MALAISE [None]
  - URINARY INCONTINENCE [None]
